FAERS Safety Report 5194779-1 (Version None)
Quarter: 2006Q4

REPORT INFORMATION
  Report Type: 
  Country: None (occurrence: None)
  Receive Date: 20061229
  Receipt Date: 20061219
  Transmission Date: 20070319
  Serious: Yes (Other)
  Sender: FDA-Public Use
  Company Number: PHEH2006US15365

PATIENT
  Age: 49 Year
  Sex: Female

DRUGS (4)
  1. ZELNORM [Suspect]
     Indication: IRRITABLE BOWEL SYNDROME
     Dosage: 6 MG, BID
     Route: 048
     Dates: start: 20061208
  2. LEXAPRO [Suspect]
     Dosage: UNK, UNK
  3. CYMBALTA [Suspect]
     Dates: end: 20061217
  4. CYMBALTA [Suspect]
     Dosage: UNK, UNK
     Dates: start: 20061219

REACTIONS (7)
  - BLOOD PRESSURE INCREASED [None]
  - DRUG INTERACTION [None]
  - HYPERSOMNIA [None]
  - INSOMNIA [None]
  - NAUSEA [None]
  - OESOPHAGITIS [None]
  - PRODUCTIVE COUGH [None]
